FAERS Safety Report 17195628 (Version 1)
Quarter: 2020Q1

REPORT INFORMATION
  Report Type: Spontaneous
  Country: US (occurrence: US)
  Receive Date: 20191223
  Receipt Date: 20191223
  Transmission Date: 20200409
  Serious: Yes (Hospitalization)
  Sender: FDA-Public Use
  Company Number: None

PATIENT
  Age: 63 Year
  Sex: Male

DRUGS (6)
  1. CAPECITABINE. [Suspect]
     Active Substance: CAPECITABINE
     Indication: PANCREATIC CARCINOMA
     Route: 048
  2. FLUDROCORT TAB 0.1MG [Concomitant]
     Dates: start: 20190224
  3. PANTOPRAZOLE TAB 40MG [Concomitant]
     Dates: start: 20191017
  4. GEMCITEBINE [Concomitant]
  5. HYDROCORT TAB 5MG [Concomitant]
     Dates: start: 20190822
  6. GEMCITABINE. [Suspect]
     Active Substance: GEMCITABINE

REACTIONS (7)
  - Red blood cell count decreased [None]
  - Pyrexia [None]
  - Fatigue [None]
  - White blood cell count decreased [None]
  - Therapy cessation [None]
  - Platelet count decreased [None]
  - Constipation [None]

NARRATIVE: CASE EVENT DATE: 20191129
